FAERS Safety Report 6547950-8 (Version None)
Quarter: 2010Q1

REPORT INFORMATION
  Report Type: 
  Country: None (occurrence: None)
  Receive Date: 20100124
  Receipt Date: 20091116
  Transmission Date: 20100710
  Serious: Yes (Death)
  Sender: FDA-Public Use
  Company Number: US-ALEXION-A200900978

PATIENT

DRUGS (2)
  1. SOLIRIS [Suspect]
     Indication: PAROXYSMAL NOCTURNAL HAEMOGLOBINURIA
     Dosage: 600 MG, QWK
     Route: 042
     Dates: start: 20080910, end: 20081001
  2. SOLIRIS [Suspect]
     Dosage: 900 MG,Q2WK
     Route: 042
     Dates: start: 20081008, end: 20090225

REACTIONS (1)
  - DEATH [None]
